FAERS Safety Report 19653931 (Version 2)
Quarter: 2021Q3

REPORT INFORMATION
  Report Type: Report from Study
  Country: IT (occurrence: IT)
  Receive Date: 20210803
  Receipt Date: 20210813
  Transmission Date: 20211014
  Serious: Yes (Hospitalization, Other)
  Sender: FDA-Public Use
  Company Number: IT-GILEAD-2021-0542070

PATIENT
  Sex: Male
  Weight: 101 kg

DRUGS (1)
  1. BREXUCABTAGENE AUTOLEUCEL. [Suspect]
     Active Substance: BREXUCABTAGENE AUTOLEUCEL
     Indication: HAEMATOLOGICAL MALIGNANCY
     Dosage: UNK
     Route: 042
     Dates: start: 20210524, end: 20210524

REACTIONS (2)
  - Febrile neutropenia [Recovering/Resolving]
  - Vascular device infection [Not Recovered/Not Resolved]

NARRATIVE: CASE EVENT DATE: 20210726
